FAERS Safety Report 18022312 (Version 1)
Quarter: 2020Q3

REPORT INFORMATION
  Report Type: Report from Study
  Country: CO (occurrence: CO)
  Receive Date: 20200714
  Receipt Date: 20200714
  Transmission Date: 20201103
  Serious: Yes (Life-Threatening, Hospitalization)
  Sender: FDA-Public Use
  Company Number: CO-INCYTE CORPORATION-2020IN006352

PATIENT

DRUGS (1)
  1. JAKAVI [Suspect]
     Active Substance: RUXOLITINIB
     Indication: POLYCYTHAEMIA VERA
     Dosage: (APPROXIMATELY 3 YEARS AGO)
     Route: 048

REACTIONS (8)
  - Rebound effect [Unknown]
  - Incorrect dose administered [Unknown]
  - Vomiting [Unknown]
  - Feeling abnormal [Unknown]
  - Dizziness [Unknown]
  - Hepatic failure [Unknown]
  - Renal failure [Unknown]
  - Psychiatric symptom [Unknown]
